FAERS Safety Report 4304059-1 (Version None)
Quarter: 2004Q1

REPORT INFORMATION
  Report Type: 
  Country: None (occurrence: None)
  Receive Date: 20040223
  Receipt Date: 20040105
  Transmission Date: 20041129
  Serious: No
  Sender: FDA-Public Use
  Company Number: PHEH2004US00470

PATIENT
  Age: 71 Year
  Sex: Female

DRUGS (2)
  1. ZELNORM [Suspect]
     Indication: IRRITABLE BOWEL SYNDROME
     Dosage: 6 MG, BID, ORAL
     Route: 048
     Dates: start: 20031101, end: 20031223
  2. CORTISONE (CORTISONE) [Suspect]

REACTIONS (4)
  - ERYTHEMA [None]
  - FLUSHING [None]
  - JOINT SWELLING [None]
  - SWELLING FACE [None]
